FAERS Safety Report 5016646-6 (Version None)
Quarter: 2006Q2

REPORT INFORMATION
  Report Type: 
  Country: None (occurrence: None)
  Receive Date: 20060526
  Receipt Date: 20060516
  Transmission Date: 20061013
  Serious: Yes (Life-Threatening)
  Sender: FDA-Public Use
  Company Number: GXKR2006AU02719

PATIENT
  Age: 48 Year
  Sex: Male

DRUGS (2)
  1. HYDROCORTISONE [Suspect]
     Indication: RASH
     Dosage: 200 MG, QID, INTRAVENOUS
     Route: 042
  2. AMPHETAMINE+DEXTROAMPHETAMINE (NGX)(AMFETAMINE, DEXAMFETAMINE) TABLET [Suspect]
     Dosage: INTRAVENOUS
     Route: 042

REACTIONS (10)
  - BLOOD ALKALINE PHOSPHATASE INCREASED [None]
  - CENTRAL LINE INFECTION [None]
  - CONJUNCTIVITIS [None]
  - GAMMA-GLUTAMYLTRANSFERASE INCREASED [None]
  - NEUTROPENIA [None]
  - PATHOGEN RESISTANCE [None]
  - PSEUDOMONAS INFECTION [None]
  - STAPHYLOCOCCAL SEPSIS [None]
  - SYSTEMIC CANDIDA [None]
  - TOXIC EPIDERMAL NECROLYSIS [None]
